FAERS Safety Report 7851565-9 (Version None)
Quarter: 2011Q4

REPORT INFORMATION
  Report Type: 
  Country: None (occurrence: None)
  Receive Date: 20111026
  Receipt Date: 20111017
  Transmission Date: 20120403
  Serious: Yes (Death)
  Sender: FDA-Public Use
  Company Number: GB-ROCHE-1004931

PATIENT
  Sex: Male
  Weight: 52 kg

DRUGS (5)
  1. XELODA [Suspect]
     Indication: GASTRIC CANCER
     Dosage: LAST DOSE PRIOR TO SAE ON 21 JUN 2011, THERAPY WAS STOPPED.
     Route: 048
     Dates: start: 20110110
  2. AVASTIN [Suspect]
     Indication: GASTRIC CANCER
     Dosage: LAST DOSE PRIOR TO SAE ON 16 JUN 2011, THERAPY WAS STOPPED.
     Route: 042
     Dates: start: 20110110
  3. DEXAMETHASONE [Concomitant]
     Route: 048
     Dates: start: 20110628, end: 20110701
  4. CISPLATIN [Suspect]
     Indication: GASTRIC CANCER
     Dosage: LAST DOSE PRIOR TOSAE  ON 16 JUN 2011. THERAPY WAS STOPPED.
     Route: 048
     Dates: start: 20110110
  5. EPIRUBICIN HYDROCHLORIDE [Suspect]
     Indication: GASTRIC CANCER
     Dosage: LAST DOSE PRIOR TO SAE ON 16 JUN 2011, THERAPY WAS STOPPED.
     Route: 042
     Dates: start: 20110110

REACTIONS (1)
  - PULMONARY EMBOLISM [None]
